FAERS Safety Report 8152805-1 (Version None)
Quarter: 2012Q1

REPORT INFORMATION
  Report Type: 
  Country: None (occurrence: None)
  Receive Date: 20120216
  Receipt Date: 20120216
  Transmission Date: 20120608
  Serious: Yes (Other)
  Sender: FDA-Public Use
  Company Number: None

PATIENT
  Age: 85 Year
  Sex: Female

DRUGS (16)
  1. ALBUTEROL INHALER [Concomitant]
  2. VICODIN [Concomitant]
  3. PANTOPRAZOLE [Concomitant]
  4. FILGRASTIM [Concomitant]
  5. ISOSORBIDE MONONITRATE [Concomitant]
  6. DEFERASIROX [Concomitant]
  7. BECLOMETHASONE DIPROPIONATE [Concomitant]
  8. GABAPENTIN [Concomitant]
  9. FLUTICASONE PROPIONATE [Concomitant]
  10. REVLIMID [Suspect]
     Indication: MYELODYSPLASTIC SYNDROME
     Dosage: 10 MG DAILY X21/28 DAYS BY MOUTH
     Route: 048
     Dates: start: 20110607, end: 20110715
  11. EPOETIN [Concomitant]
  12. ONDANSETRON [Concomitant]
  13. NITROGLYCERIN [Concomitant]
  14. FUROSEMIDE [Concomitant]
  15. NYSTATIN [Concomitant]
  16. TRAZODONE HCL [Concomitant]

REACTIONS (1)
  - THROMBOCYTOPENIA [None]
